FAERS Safety Report 6457085-0 (Version None)
Quarter: 2009Q4

REPORT INFORMATION
  Report Type: 
  Country: None (occurrence: None)
  Receive Date: 20091125
  Receipt Date: 20091117
  Transmission Date: 20100525
  Serious: Yes (Life-Threatening, Other)
  Sender: FDA-Public Use
  Company Number: B0446411A

PATIENT
  Age: 30 Year
  Sex: Female

DRUGS (3)
  1. ZANTAC [Suspect]
     Route: 042
     Dates: start: 20060501
  2. MAXOLON [Suspect]
     Dosage: 10MG UNKNOWN
     Route: 042
     Dates: start: 20060501
  3. METOCLOPRAMIDE [Concomitant]

REACTIONS (5)
  - ANAPHYLACTIC REACTION [None]
  - DYSPNOEA [None]
  - EYELID OEDEMA [None]
  - FACE OEDEMA [None]
  - LIP SWELLING [None]
